FAERS Safety Report 13303380 (Version 1)
Quarter: 2017Q1

REPORT INFORMATION
  Report Type: Spontaneous
  Country: BE (occurrence: BE)
  Receive Date: 20170307
  Receipt Date: 20170307
  Transmission Date: 20170428
  Serious: Yes (Other)
  Sender: FDA-Public Use
  Company Number: BE-BAYER-2017-037410

PATIENT
  Age: 26 Year
  Sex: Female

DRUGS (1)
  1. JAYDESS 13,5 MG [Suspect]
     Active Substance: LEVONORGESTREL
     Indication: CONTRACEPTION
     Dosage: 14 MCG/24HR, CONT
     Route: 015
     Dates: start: 20160421, end: 20161104

REACTIONS (2)
  - Cervix carcinoma [None]
  - Unintentional medical device removal [None]

NARRATIVE: CASE EVENT DATE: 2016
